FAERS Safety Report 6125500-8 (Version None)
Quarter: 2009Q1

REPORT INFORMATION
  Report Type: 
  Country: None (occurrence: None)
  Receive Date: 20090319
  Receipt Date: 20090319
  Transmission Date: 20090719
  Serious: Yes (Hospitalization, Other)
  Sender: FDA-Public Use
  Company Number: None

PATIENT
  Sex: Female
  Weight: 15.6 kg

DRUGS (2)
  1. ALDESLEUKIN [Suspect]
     Indication: NEUROBLASTOMA
     Dosage: 3.15 MU DAILY IV DRIP
     Route: 041
     Dates: start: 20090209, end: 20090211
  2. CHIMERIC MAB -CH14.18- [Suspect]
     Indication: NEUROBLASTOMA
     Dosage: 17.5 MG DAILY IV DRIP
     Route: 041
     Dates: start: 20090209, end: 20090212

REACTIONS (1)
  - HYPOTENSION [None]
